FAERS Safety Report 19887251 (Version 1)
Quarter: 2021Q3

REPORT INFORMATION
  Report Type: Spontaneous
  Country: DK (occurrence: DK)
  Receive Date: 20210928
  Receipt Date: 20210928
  Transmission Date: 20211014
  Serious: Yes (Life-Threatening, Hospitalization)
  Sender: FDA-Public Use
  Company Number: DK-TEVA-2021-DK-1957442

PATIENT
  Age: 28 Year
  Sex: Female

DRUGS (2)
  1. LAMOTRIGIN ^TEVA^ [Suspect]
     Active Substance: LAMOTRIGINE
     Indication: EPILEPSY
     Dosage: DOSE: CURRENT DOSE OF 100 MG TWICE DAILY WAS TAKEN FROM 22JUN2021:UNIT DOSE:200MILLIGRAM
     Route: 048
     Dates: start: 20210428, end: 20210902
  2. MULTIVITAMIN [Concomitant]
     Active Substance: VITAMINS
     Indication: VITAMIN SUPPLEMENTATION
     Dates: start: 20210428

REACTIONS (4)
  - Malaise [Unknown]
  - Palpitations [Unknown]
  - Chest pain [Unknown]
  - Torsade de pointes [Recovered/Resolved]

NARRATIVE: CASE EVENT DATE: 20210902
